FAERS Safety Report 5524709-1 (Version None)
Quarter: 2007Q4

REPORT INFORMATION
  Report Type: 
  Country: None (occurrence: None)
  Receive Date: 20071123
  Receipt Date: 20071113
  Transmission Date: 20080405
  Serious: Yes (Other)
  Sender: FDA-Public Use
  Company Number: PHBS2007IT19140

PATIENT
  Age: 44 Year
  Sex: Male

DRUGS (2)
  1. CYCLOSPORINE [Suspect]
     Indication: PSORIASIS
     Dosage: 3 MG/KG/DAY
     Route: 065
  2. CLOZAPINE [Concomitant]
     Indication: SCHIZOPHRENIA, PARANOID TYPE
     Route: 065

REACTIONS (3)
  - AGGRESSION [None]
  - PSYCHOMOTOR HYPERACTIVITY [None]
  - SCHIZOPHRENIA, PARANOID TYPE [None]
